FAERS Safety Report 12678395 (Version 1)
Quarter: 2016Q3

REPORT INFORMATION
  Report Type: Spontaneous
  Country: SI (occurrence: SI)
  Receive Date: 20160823
  Receipt Date: 20160823
  Transmission Date: 20161109
  Serious: Yes (Other)
  Sender: FDA-Public Use
  Company Number: SI-ALLERGAN-1666411US

PATIENT
  Age: 32 Year
  Sex: Male

DRUGS (1)
  1. COMBIGAN [Suspect]
     Active Substance: BRIMONIDINE TARTRATE\TIMOLOL MALEATE
     Indication: ANGLE CLOSURE GLAUCOMA
     Dosage: UNK
     Dates: start: 201602

REACTIONS (4)
  - Off label use [Unknown]
  - Intraocular pressure increased [Unknown]
  - Pain [Unknown]
  - Drug ineffective [Unknown]
